FAERS Safety Report 13462836 (Version 1)
Quarter: 2017Q2

REPORT INFORMATION
  Report Type: Spontaneous
  Country: US (occurrence: US)
  Receive Date: 20170420
  Receipt Date: 20170420
  Transmission Date: 20170830
  Serious: No
  Sender: FDA-Public Use
  Company Number: US-PFIZER INC-2017172250

PATIENT
  Age: 78 Year
  Sex: Male
  Weight: 86 kg

DRUGS (5)
  1. ELIQUIS [Concomitant]
     Active Substance: APIXABAN
     Indication: CARDIAC DISORDER
     Dosage: 2.5 MG, 1X/DAY
     Dates: start: 2015
  2. DIGOXIN. [Concomitant]
     Active Substance: DIGOXIN
     Indication: CARDIAC DISORDER
     Dosage: 0.125 MG, 1X/DAY
  3. METOPROLOL. [Concomitant]
     Active Substance: METOPROLOL
     Indication: CARDIAC DISORDER
     Dosage: 13.5 MG, 2X/DAY, ONE HALF 25MG IN THE MORNING AND EVENING
     Dates: start: 2015
  4. SUTENT [Suspect]
     Active Substance: SUNITINIB MALATE
     Indication: HEPATIC MASS
     Dosage: 50 MG, 1X/DAY
     Route: 048
     Dates: start: 2016
  5. LOSARTAN. [Concomitant]
     Active Substance: LOSARTAN
     Indication: CARDIAC DISORDER
     Dosage: 25 MG, 1X/DAY
     Dates: start: 2015

REACTIONS (2)
  - Product use in unapproved indication [Unknown]
  - Abdominal pain upper [Recovered/Resolved]

NARRATIVE: CASE EVENT DATE: 2016
